FAERS Safety Report 24342669 (Version 2)
Quarter: 2024Q4

REPORT INFORMATION
  Report Type: Other
  Country: US (occurrence: US)
  Receive Date: 20240920
  Receipt Date: 20241004
  Transmission Date: 20250115
  Serious: Yes (Death, Hospitalization)
  Sender: ALVOGEN
  Company Number: US-ALVOGEN-2024095491

PATIENT
  Age: 45 Year
  Sex: Male

DRUGS (1)
  1. FENTANYL [Suspect]
     Active Substance: FENTANYL
     Indication: Product used for unknown indication

REACTIONS (12)
  - Toxicity to various agents [Fatal]
  - CHANTER syndrome [Fatal]
  - Brain injury [Fatal]
  - Unresponsive to stimuli [Fatal]
  - Miosis [Fatal]
  - Brainstem compression [Fatal]
  - Hydrocephalus [Fatal]
  - Brain oedema [Fatal]
  - Central nervous system necrosis [Fatal]
  - Cerebellar infarction [Fatal]
  - Cerebellar haemorrhage [Fatal]
  - Respiratory depression [Fatal]
